FAERS Safety Report 8942302 (Version 1)
Quarter: 2012Q4

REPORT INFORMATION
  Report Type: Spontaneous
  Country: US (occurrence: None)
  Receive Date: 20121123
  Receipt Date: 20121123
  Transmission Date: 20130627
  Serious: Yes (Other)
  Sender: FDA-Public Use
  Company Number: US-010162

PATIENT
  Age: 49 Year
  Sex: Male

DRUGS (1)
  1. HUMAN GROWTH HORMONE 20K [Suspect]
     Indication: HORMONE THERAPY
     Route: 058

REACTIONS (2)
  - Malignant melanoma [None]
  - Off label use [None]
